FAERS Safety Report 5390823-7 (Version None)
Quarter: 2007Q3

REPORT INFORMATION
  Report Type: 
  Country: None (occurrence: None)
  Receive Date: 20070716
  Receipt Date: 20070705
  Transmission Date: 20080115
  Serious: Yes (Death)
  Sender: FDA-Public Use
  Company Number: 2007AL002723

PATIENT
  Age: 40 Year
  Sex: Male

DRUGS (5)
  1. FLUOXETINE [Suspect]
     Indication: MAJOR DEPRESSION
     Dosage: 60 MG; QD; PO
     Route: 048
     Dates: start: 20040401
  2. OLANZAPINE [Concomitant]
  3. TEMAZEPAM [Concomitant]
  4. DIAZEPAM [Concomitant]
  5. MIRTAZAPINE [Concomitant]

REACTIONS (4)
  - DEPRESSED LEVEL OF CONSCIOUSNESS [None]
  - DRUG LEVEL INCREASED [None]
  - RESPIRATORY DEPRESSION [None]
  - SUDDEN DEATH [None]
